FAERS Safety Report 5625958-4 (Version None)
Quarter: 2008Q1

REPORT INFORMATION
  Report Type: 
  Country: None (occurrence: None)
  Receive Date: 20080214
  Receipt Date: 20080214
  Transmission Date: 20080703
  Serious: Yes (Disabling)
  Sender: FDA-Public Use
  Company Number: A0709607A

PATIENT
  Weight: 126.4 kg

DRUGS (1)
  1. ALLI [Suspect]
     Route: 048

REACTIONS (2)
  - GASTROENTERITIS VIRAL [None]
  - STRESS [None]
